FAERS Safety Report 11544234 (Version 1)
Quarter: 2015Q3

REPORT INFORMATION
  Report Type: Spontaneous
  Country: CI (occurrence: CI)
  Receive Date: 20150924
  Receipt Date: 20150924
  Transmission Date: 20151125
  Serious: Yes (Death)
  Sender: FDA-Public Use
  Company Number: CI-ROCHE-1637442

PATIENT
  Age: 51 Year

DRUGS (9)
  1. DOXORUBICIN [Concomitant]
     Active Substance: DOXORUBICIN
     Indication: LUNG NEOPLASM MALIGNANT
     Route: 042
     Dates: start: 2015, end: 2015
  2. FLUOROURACIL. [Concomitant]
     Active Substance: FLUOROURACIL
     Indication: HEPATIC CANCER
  3. EPIRUBICIN [Concomitant]
     Active Substance: EPIRUBICIN
     Indication: LUNG NEOPLASM MALIGNANT
     Route: 040
     Dates: start: 2015, end: 2015
  4. DOXORUBICIN [Concomitant]
     Active Substance: DOXORUBICIN
     Indication: HEPATIC CANCER
  5. EPIRUBICIN [Concomitant]
     Active Substance: EPIRUBICIN
     Indication: HEPATIC CANCER
  6. CYCLOPHOSPHAMIDE. [Concomitant]
     Active Substance: CYCLOPHOSPHAMIDE
     Indication: LUNG NEOPLASM MALIGNANT
     Route: 040
     Dates: start: 2015, end: 2015
  7. FLUOROURACIL. [Concomitant]
     Active Substance: FLUOROURACIL
     Indication: LUNG NEOPLASM MALIGNANT
     Route: 040
     Dates: start: 2015, end: 2015
  8. CYCLOPHOSPHAMIDE. [Concomitant]
     Active Substance: CYCLOPHOSPHAMIDE
     Indication: HEPATIC CANCER
  9. HERCEPTIN [Suspect]
     Active Substance: TRASTUZUMAB
     Indication: BREAST CANCER METASTATIC
     Route: 040
     Dates: start: 2015, end: 2015

REACTIONS (1)
  - Hepatic neoplasm [Fatal]

NARRATIVE: CASE EVENT DATE: 2015
